FAERS Safety Report 8937951 (Version 1)
Quarter: 2012Q4

REPORT INFORMATION
  Report Type: 
  Country: US (occurrence: US)
  Receive Date: 20121130
  Receipt Date: 20121130
  Transmission Date: 20130627
  Serious: No
  Sender: FDA-Public Use
  Company Number: US-VERTEX PHARMACEUTICAL INC.-2012-025358

PATIENT
  Age: 54 Year
  Sex: Male
  Weight: 95.24 kg

DRUGS (4)
  1. VX-950 (TELAPREVIR) [Suspect]
     Indication: HEPATITIS C
     Dosage: 750 mg, qd
     Route: 048
  2. PEGASYS [Concomitant]
     Indication: HEPATITIS C
  3. TRAZODONE [Concomitant]
     Dosage: 100 mg, qd
  4. ACETAMINOPHEN [Concomitant]
     Dosage: 650 mg, qd

REACTIONS (5)
  - Dyspnoea [Unknown]
  - Dizziness [Unknown]
  - Cough [Unknown]
  - Nausea [Unknown]
  - Anaemia [Unknown]
